FAERS Safety Report 6221654-3 (Version None)
Quarter: 2009Q2

REPORT INFORMATION
  Report Type: 
  Country: None (occurrence: None)
  Receive Date: 20090610
  Receipt Date: 20090516
  Transmission Date: 20091009
  Serious: Yes (Death, Hospitalization)
  Sender: FDA-Public Use
  Company Number: PHEH2009US05853

PATIENT
  Sex: Male

DRUGS (1)
  1. EXJADE [Suspect]
     Indication: MYELODYSPLASTIC SYNDROME
     Dosage: 1000 MG, QD
     Route: 048
     Dates: start: 20090305

REACTIONS (3)
  - ANAEMIA [None]
  - CHEST PAIN [None]
  - DEATH [None]
